FAERS Safety Report 24869793 (Version 1)
Quarter: 2025Q1

REPORT INFORMATION
  Report Type: Spontaneous
  Country: US (occurrence: None)
  Receive Date: 20250120
  Receipt Date: 20250120
  Transmission Date: 20250408
  Serious: Yes (Disabling, Other)
  Sender: FDA-CTU
  Company Number: None

PATIENT

DRUGS (1)
  1. ARAZLO [Suspect]
     Active Substance: TAZAROTENE
     Indication: Acne

REACTIONS (2)
  - Headache [None]
  - Product communication issue [None]
